FAERS Safety Report 15276555 (Version 1)
Quarter: 2018Q3

REPORT INFORMATION
  Report Type: Spontaneous
  Country: US (occurrence: US)
  Receive Date: 20180814
  Receipt Date: 20180814
  Transmission Date: 20181010
  Serious: Yes (Life-Threatening, Other)
  Sender: FDA-Public Use
  Company Number: US-ALKEM LABORATORIES LIMITED-US-ALKEM-2018-06257

PATIENT
  Sex: Male
  Weight: 2 kg

DRUGS (1)
  1. METHADONE HYDROCHLORIDE. [Suspect]
     Active Substance: METHADONE HYDROCHLORIDE
     Indication: PRODUCT USED FOR UNKNOWN INDICATION
     Dosage: 0.05 MG/KG, PER DOSE EVERY 6 HOURS
     Route: 048

REACTIONS (2)
  - Accidental overdose [Recovering/Resolving]
  - Acute chest syndrome [Recovering/Resolving]
